FAERS Safety Report 25632880 (Version 1)
Quarter: 2025Q3

REPORT INFORMATION
  Report Type: Other
  Country: GB (occurrence: GB)
  Receive Date: 20250801
  Receipt Date: 20250801
  Transmission Date: 20251020
  Serious: Yes (Other)
  Sender: GLENMARK
  Company Number: None

PATIENT
  Age: 45 Year
  Sex: Female
  Weight: 84 kg

DRUGS (18)
  1. DAPAGLIFLOZIN [Suspect]
     Active Substance: DAPAGLIFLOZIN
     Indication: Ill-defined disorder
     Dosage: 1 DOSAGE FORM, QD (TAKE ONE DAILY)
     Route: 065
     Dates: start: 20250227
  2. BETAMETHASONE VALERATE [Concomitant]
     Active Substance: BETAMETHASONE VALERATE
     Indication: Ill-defined disorder
     Dosage: UNK UNK, BID (APPLY TWICE DAILY TO AFFECTED AREA)
     Route: 065
     Dates: start: 20250523, end: 20250620
  3. FLUCLOXACILLIN [Concomitant]
     Active Substance: FLUCLOXACILLIN
     Indication: Ill-defined disorder
     Dosage: 1 DOSAGE FORM, QID (TAKE ONE CAPSULE FOUR TIMES DAILY FOR 7 DAYS  )
     Route: 065
     Dates: start: 20250523, end: 20250530
  4. TIRZEPATIDE [Concomitant]
     Active Substance: TIRZEPATIDE
     Indication: Ill-defined disorder
     Dosage: 1 DOSAGE FORM, QW (INJECT ONE DOSE WEEKLY. EACH PEN CONTAINS 4 DOSES  )
     Route: 065
     Dates: start: 20250707
  5. MELOXICAM [Concomitant]
     Active Substance: MELOXICAM
     Indication: Ill-defined disorder
     Dosage: UNK UNK, QD (TAKE ONE DAILY)
     Route: 065
  6. ASPIRIN [Concomitant]
     Active Substance: ASPIRIN
     Indication: Ill-defined disorder
     Dosage: 1 DOSAGE FORM, QD (TAKE 1 DAILY (WITH OR AFTER FOOD)  )
     Route: 065
     Dates: start: 20250227
  7. ATORVASTATIN [Concomitant]
     Active Substance: ATORVASTATIN
     Indication: Ill-defined disorder
     Route: 065
     Dates: start: 20250227
  8. BISOPROLOL [Concomitant]
     Active Substance: BISOPROLOL
     Indication: Ill-defined disorder
     Dosage: UNK UNK, QD (TAKE ONE DAILY )
     Route: 065
     Dates: start: 20250227
  9. CANDESARTAN [Concomitant]
     Active Substance: CANDESARTAN
     Indication: Diabetes mellitus
     Dosage: UNK, QD (TAKE ONE ONCE DAILY 9 FOR DIABETES AND MIGRAINES)  )
     Route: 065
     Dates: start: 20250227
  10. CANDESARTAN [Concomitant]
     Active Substance: CANDESARTAN
     Indication: Migraine
  11. FERROUS SULFATE [Concomitant]
     Active Substance: FERROUS SULFATE
     Indication: Ill-defined disorder
     Dosage: UNK, QD (AKE ONE ONCE DAILY)
     Route: 065
     Dates: start: 20250227
  12. GLICLAZIDE [Concomitant]
     Active Substance: GLICLAZIDE
     Indication: Ill-defined disorder
     Dosage: UNK, BID (ONE TO BE TAKEN TWICE DAILY )
     Route: 065
     Dates: start: 20250227
  13. INSULIN HUMAN [Concomitant]
     Active Substance: INSULIN HUMAN
     Indication: Ill-defined disorder
     Route: 058
     Dates: start: 20250227
  14. ISOSORBIDE MONONITRATE [Concomitant]
     Active Substance: ISOSORBIDE MONONITRATE
     Indication: Ill-defined disorder
     Route: 065
     Dates: start: 20250227
  15. METFORMIN [Concomitant]
     Active Substance: METFORMIN HYDROCHLORIDE
     Indication: Ill-defined disorder
     Dosage: UNK UNK, BID (1 TO BE TAKEN TWICE DAILY)
     Route: 065
     Dates: start: 20250227
  16. NICORANDIL [Concomitant]
     Active Substance: NICORANDIL
     Indication: Ill-defined disorder
     Dosage: UNK UNK, BID (TAKE ONE TWICE DAILY)
     Route: 065
     Dates: start: 20250227
  17. OMEPRAZOLE [Concomitant]
     Active Substance: OMEPRAZOLE
     Indication: Ill-defined disorder
     Route: 065
     Dates: start: 20250227
  18. VENTOLIN [Concomitant]
     Active Substance: ALBUTEROL SULFATE
     Indication: Ill-defined disorder
     Dates: start: 20250227

REACTIONS (1)
  - Vulvovaginal candidiasis [Recovered/Resolved]
